FAERS Safety Report 23496915 (Version 1)
Quarter: 2024Q1

REPORT INFORMATION
  Report Type: Spontaneous
  Country: US (occurrence: None)
  Receive Date: 20240207
  Receipt Date: 20240207
  Transmission Date: 20240410
  Serious: No
  Sender: FDA-Public Use
  Company Number: US-ROCHE-3375240

PATIENT
  Age: 45 Year
  Sex: Female

DRUGS (24)
  1. XOLAIR [Suspect]
     Active Substance: OMALIZUMAB
     Indication: Psoriatic arthropathy
     Dosage: STRENGTH: 150MG/ML
     Route: 058
     Dates: start: 20211117
  2. XOLAIR [Suspect]
     Active Substance: OMALIZUMAB
  3. XOLAIR [Suspect]
     Active Substance: OMALIZUMAB
  4. ADVAIR DISKUS [Concomitant]
     Active Substance: FLUTICASONE PROPIONATE\SALMETEROL XINAFOATE
  5. CITALOPRAM [Concomitant]
     Active Substance: CITALOPRAM HYDROBROMIDE
  6. PRIMIDONE [Concomitant]
     Active Substance: PRIMIDONE
  7. SPIRIVA [Concomitant]
     Active Substance: TIOTROPIUM BROMIDE MONOHYDRATE
  8. ABILIFY [Concomitant]
     Active Substance: ARIPIPRAZOLE
  9. ALBUTEROL [Concomitant]
     Active Substance: ALBUTEROL
  10. ATORVASTATIN [Concomitant]
     Active Substance: ATORVASTATIN
  11. AZITHROMYCIN [Concomitant]
     Active Substance: AZITHROMYCIN
  12. BACLOFEN [Concomitant]
     Active Substance: BACLOFEN
  13. CELEBREX [Concomitant]
     Active Substance: CELECOXIB
  14. GABAPENTIN [Concomitant]
     Active Substance: GABAPENTIN
  15. LORAZEPAM [Concomitant]
     Active Substance: LORAZEPAM
  16. MAGNESIUM [Concomitant]
     Active Substance: MAGNESIUM
  17. MELATONIN [Concomitant]
     Active Substance: MELATONIN
  18. METFORMIN HYDROCHLORIDE [Concomitant]
     Active Substance: METFORMIN HYDROCHLORIDE
  19. MONTELUKAST [Concomitant]
     Active Substance: MONTELUKAST SODIUM
  20. PANTOPRAZOLE [Concomitant]
     Active Substance: PANTOPRAZOLE
  21. PRAZOSIN [Concomitant]
     Active Substance: PRAZOSIN
  22. VENTOLIN HFA [Concomitant]
     Active Substance: ALBUTEROL SULFATE
  23. VITAMIN C [Concomitant]
     Active Substance: ASCORBIC ACID
  24. ZINC [Concomitant]
     Active Substance: PYRITHIONE ZINC\ZINC\ZINC CHLORIDE

REACTIONS (2)
  - Off label use [Unknown]
  - No adverse event [Unknown]

NARRATIVE: CASE EVENT DATE: 20211117
